FAERS Safety Report 11908666 (Version 1)
Quarter: 2016Q1

REPORT INFORMATION
  Report Type: Spontaneous
  Country: MN (occurrence: MN)
  Receive Date: 20160111
  Receipt Date: 20160111
  Transmission Date: 20160526
  Serious: Yes (Other)
  Sender: FDA-Public Use
  Company Number: MN-009507513-1601MNG002531

PATIENT
  Age: 23 Year
  Sex: Male

DRUGS (3)
  1. REBETOL [Suspect]
     Active Substance: RIBAVIRIN
     Indication: CHRONIC HEPATITIS C
     Dosage: 1200 MG DAILY
  2. REBETOL [Suspect]
     Active Substance: RIBAVIRIN
     Dosage: 1000 MG DAILY
  3. INTERFERON (UNSPECIFIED) [Suspect]
     Active Substance: UNSPECIFIED INGREDIENT
     Indication: CHRONIC HEPATITIS C

REACTIONS (3)
  - Hyperbilirubinaemia [Unknown]
  - Haemolysis [Unknown]
  - Depression [Unknown]
